FAERS Safety Report 12420932 (Version 1)
Quarter: 2016Q2

REPORT INFORMATION
  Report Type: Spontaneous
  Country: JP (occurrence: JP)
  Receive Date: 20160531
  Receipt Date: 20160531
  Transmission Date: 20160815
  Serious: Yes (Death, Life-Threatening)
  Sender: FDA-Public Use
  Company Number: JP-MALLINCKRODT-T201602069

PATIENT
  Age: 36 Year
  Sex: Male
  Weight: 62 kg

DRUGS (38)
  1. OXINORM [Concomitant]
     Active Substance: OXYCODONE HYDROCHLORIDE
     Indication: BREAKTHROUGH PAIN
     Dosage: 20 MG PRN
     Route: 048
     Dates: start: 20140928
  2. ZYPREXA [Concomitant]
     Active Substance: OLANZAPINE
     Dosage: 2.5 MG
     Route: 048
  3. LYRICA [Concomitant]
     Active Substance: PREGABALIN
     Dosage: 150 MG
     Route: 048
     Dates: start: 20141031, end: 20141113
  4. SERENACE [Concomitant]
     Active Substance: HALOPERIDOL
     Dosage: 2.5 MG
     Route: 051
     Dates: start: 20141030, end: 20141114
  5. SOLDEM 1 [Concomitant]
     Active Substance: DEXTROSE\SODIUM CHLORIDE\SODIUM LACTATE
     Dosage: 200 ML
     Route: 051
     Dates: start: 20141029, end: 20141114
  6. MORPHINE HYDROCHLORIDE [Concomitant]
     Active Substance: MORPHINE HYDROCHLORIDE
     Indication: ANALGESIC THERAPY
     Dosage: 50 MG
     Route: 051
     Dates: start: 20141107, end: 20141114
  7. MAGMITT [Concomitant]
     Active Substance: MAGNESIUM OXIDE
     Dosage: 1980 MG
     Route: 048
  8. LYRICA [Concomitant]
     Active Substance: PREGABALIN
     Indication: ANALGESIC THERAPY
     Dosage: 50 MG
     Route: 048
     Dates: start: 20141014
  9. FUROSEMIDE. [Concomitant]
     Active Substance: FUROSEMIDE
     Dosage: 10 MG
     Route: 048
  10. HIRUDOID [Concomitant]
     Active Substance: GLYCOSAMINOGLYCANS
     Dosage: 3 DF
     Route: 061
  11. VOTRIENT [Concomitant]
     Active Substance: PAZOPANIB HYDROCHLORIDE
     Dosage: 400 MG
     Route: 048
     Dates: start: 20141006, end: 20141008
  12. CEFAMEZIN ALPHA [Concomitant]
     Active Substance: CEFAZOLIN SODIUM
     Dosage: 1000 MG
     Route: 051
     Dates: start: 20141114, end: 20141114
  13. METHADONE [Suspect]
     Active Substance: METHADONE HYDROCHLORIDE
     Dosage: 15MG (60MG TOTAL DAILY DOSE)
     Route: 048
     Dates: start: 20141007, end: 20141111
  14. ZYPREXA [Concomitant]
     Active Substance: OLANZAPINE
     Dosage: 5 MG
     Route: 048
  15. CEFMETAZON [Concomitant]
     Active Substance: CEFMETAZOLE SODIUM
     Dosage: 1 G
     Route: 051
     Dates: start: 20141008, end: 20141029
  16. METHADONE [Suspect]
     Active Substance: METHADONE HYDROCHLORIDE
     Dosage: 10MG (20MG TOTAL DAILY DOSE)
     Route: 048
     Dates: start: 20141113, end: 20141113
  17. METHADONE [Suspect]
     Active Substance: METHADONE HYDROCHLORIDE
     Dosage: 5MG (10MG TOTAL DAILY DOSE)
     Route: 048
     Dates: start: 20141114, end: 20141114
  18. WARFARIN [Concomitant]
     Active Substance: WARFARIN
     Dosage: 3 MG
     Route: 048
     Dates: end: 20141008
  19. ADOFEED [Concomitant]
     Active Substance: FLURBIPROFEN
     Indication: ANALGESIC THERAPY
     Dosage: UNK
     Route: 061
     Dates: start: 20141030, end: 20141114
  20. BFLUID [Concomitant]
     Active Substance: AMINO ACIDS\DEXTROSE\ELECTROLYTES NOS\VITAMINS
     Dosage: 500 ML
     Route: 051
     Dates: start: 20141030, end: 20141104
  21. SENNOSIDE [Concomitant]
     Active Substance: SENNOSIDES
     Dosage: 12 MG
     Route: 048
  22. FIRSTCIN [Concomitant]
     Active Substance: CEFOZOPRAN HYDROCHLORIDE
     Dosage: 1 G
     Route: 051
     Dates: start: 20141015, end: 20141015
  23. DESYREL [Concomitant]
     Active Substance: TRAZODONE HYDROCHLORIDE
     Dosage: 25 MG
     Route: 048
     Dates: start: 20141031, end: 20141114
  24. ROPION [Concomitant]
     Active Substance: FLURBIPROFEN AXETIL
     Indication: ANALGESIC THERAPY
     Dosage: 100 MG
     Route: 042
     Dates: start: 20141029, end: 20141114
  25. OMEPRAZOLE. [Concomitant]
     Active Substance: OMEPRAZOLE
     Dosage: 20 MG
     Route: 051
     Dates: start: 20141030, end: 20141114
  26. METHADONE [Suspect]
     Active Substance: METHADONE HYDROCHLORIDE
     Indication: CANCER PAIN
     Dosage: 15MG (45MG TOTAL DAILY DOSE)
     Route: 048
     Dates: start: 20140930, end: 20141006
  27. METHADONE [Suspect]
     Active Substance: METHADONE HYDROCHLORIDE
     Dosage: 10MG (40MG TOTAL DAILY DOSE)
     Route: 048
     Dates: start: 20141112, end: 20141112
  28. RINDERON V [Concomitant]
     Active Substance: BETAMETHASONE VALERATE
     Dosage: 2 MG
     Route: 048
  29. LACTULOSE. [Concomitant]
     Active Substance: LACTULOSE
     Dosage: 12000 MG
     Route: 048
     Dates: start: 20141020
  30. SANDOSTATIN [Concomitant]
     Active Substance: OCTREOTIDE ACETATE
     Dosage: 250 MG
     Route: 058
     Dates: start: 20141029, end: 20141114
  31. CELECOX [Concomitant]
     Active Substance: CELECOXIB
     Indication: ANALGESIC THERAPY
     Dosage: 100 MG
     Route: 048
     Dates: start: 20141029, end: 20141029
  32. SPIRONOLACTONE. [Concomitant]
     Active Substance: SPIRONOLACTONE
     Dosage: 25 MG
     Route: 048
  33. KAYTWO [Concomitant]
     Active Substance: MENATETRENONE
     Dosage: 10 MG
     Route: 051
     Dates: start: 20141008, end: 20141008
  34. SANDOSTATIN [Concomitant]
     Active Substance: OCTREOTIDE ACETATE
     Dosage: 600 MCG
     Route: 051
     Dates: start: 20141009
  35. HICORT [Concomitant]
     Active Substance: BETAMETHASONE SODIUM PHOSPHATE
     Dosage: 4 MG
     Route: 051
     Dates: start: 20141030, end: 20141114
  36. ZOLPIDEM TARTRATE. [Concomitant]
     Active Substance: ZOLPIDEM TARTRATE
     Dosage: 5 MG
     Route: 048
  37. TAKEPRON [Concomitant]
     Active Substance: LANSOPRAZOLE
     Dosage: 15 MG
     Route: 048
  38. MOHRUS L [Concomitant]
     Active Substance: KETOPROFEN
     Indication: ANALGESIC THERAPY
     Dosage: UNK
     Route: 061
     Dates: start: 20141030, end: 20141114

REACTIONS (2)
  - Death [Fatal]
  - Electrocardiogram QT prolonged [Unknown]

NARRATIVE: CASE EVENT DATE: 20141107
